FAERS Safety Report 16610195 (Version 1)
Quarter: 2019Q3

REPORT INFORMATION
  Report Type: Spontaneous
  Country: FR (occurrence: FR)
  Receive Date: 20190722
  Receipt Date: 20190722
  Transmission Date: 20191004
  Serious: Yes (Death)
  Sender: FDA-Public Use
  Company Number: FR-NAPPMUNDI-GBR-2019-0068340

PATIENT
  Age: 53 Year
  Sex: Male
  Weight: 86 kg

DRUGS (6)
  1. CORTANCYL [Suspect]
     Active Substance: PREDNISONE
     Indication: MUSCULAR WEAKNESS
     Dosage: 30 MG, DAILY
     Route: 048
     Dates: end: 20190510
  2. OXYNORMORO [Suspect]
     Active Substance: OXYCODONE HYDROCHLORIDE
     Indication: QUADRIPLEGIA
     Dosage: 6 DF, DAILY (STRENGTH 5MG)
     Route: 048
     Dates: end: 20190510
  3. LYSANXIA [Suspect]
     Active Substance: PRAZEPAM
     Indication: QUADRIPLEGIA
     Dosage: 25 DROP, DAILY
     Route: 065
     Dates: end: 20190510
  4. MIDAZOLAM [Suspect]
     Active Substance: MIDAZOLAM HYDROCHLORIDE
     Indication: QUADRIPLEGIA
     Dosage: 30 MG, DAILY
     Route: 065
  5. ATARAX [Suspect]
     Active Substance: HYDROXYZINE HYDROCHLORIDE
     Indication: QUADRIPLEGIA
     Dosage: 25 MG, DAILY
     Route: 048
     Dates: end: 20190510
  6. DUROGESIC [Suspect]
     Active Substance: FENTANYL
     Indication: QUADRIPLEGIA
     Dosage: 1 DF, Q72H
     Route: 062
     Dates: end: 20190508

REACTIONS (3)
  - Coma [Fatal]
  - Lung infection [Fatal]
  - Somnolence [Fatal]

NARRATIVE: CASE EVENT DATE: 20190503
